FAERS Safety Report 25260327 (Version 1)
Quarter: 2025Q2

REPORT INFORMATION
  Report Type: Spontaneous
  Country: GB (occurrence: GB)
  Receive Date: 20250501
  Receipt Date: 20250501
  Transmission Date: 20250717
  Serious: Yes (Other)
  Sender: CHATTEM
  Company Number: None

PATIENT
  Age: 42 Year
  Sex: Female
  Weight: 140 kg

DRUGS (7)
  1. FEXOFENADINE HYDROCHLORIDE [Suspect]
     Active Substance: FEXOFENADINE HYDROCHLORIDE
     Indication: Mast cell activation syndrome
     Route: 065
     Dates: start: 20250301
  2. BISOPROLOL [Concomitant]
     Active Substance: BISOPROLOL
     Indication: Postural orthostatic tachycardia syndrome
     Dates: start: 20250301
  3. CHLORPHENIRAMINE MALEATE [Concomitant]
     Active Substance: CHLORPHENIRAMINE MALEATE
     Indication: Mast cell activation syndrome
     Dates: start: 20250201
  4. CETIRIZINE HYDROCHLORIDE [Concomitant]
     Active Substance: CETIRIZINE HYDROCHLORIDE
     Indication: Mast cell activation syndrome
     Dates: start: 20241001
  5. CELECOXIB [Concomitant]
     Active Substance: CELECOXIB
     Indication: Arthralgia
     Dates: start: 20220701
  6. OMEPRAZOLE [Concomitant]
     Active Substance: OMEPRAZOLE
     Indication: Prophylaxis
     Dates: start: 20220701
  7. Progesterone only pill [Concomitant]
     Indication: Contraception
     Dates: start: 2008

REACTIONS (3)
  - Chest discomfort [Not Recovered/Not Resolved]
  - Allergic reaction to excipient [Not Recovered/Not Resolved]
  - Dyspnoea [Not Recovered/Not Resolved]

NARRATIVE: CASE EVENT DATE: 20250425
